FAERS Safety Report 5241365-0 (Version None)
Quarter: 2007Q1

REPORT INFORMATION
  Report Type: 
  Country: None (occurrence: None)
  Receive Date: 20070220
  Receipt Date: 20070206
  Transmission Date: 20070707
  Serious: Yes (Hospitalization)
  Sender: FDA-Public Use
  Company Number: HQWYE908107FEB07

PATIENT
  Age: 49 Year
  Sex: Female

DRUGS (5)
  1. ENBREL [Suspect]
     Indication: PYODERMA GANGRENOSUM
     Dates: start: 20030401, end: 20030801
  2. ENBREL [Suspect]
     Dates: start: 20031001
  3. DICLOFENAC SODIUM [Concomitant]
     Indication: PSORIATIC ARTHROPATHY
     Dates: start: 20030101
  4. METHYLPREDNISOLONE 16MG TAB [Concomitant]
     Dosage: UNKNOWN
     Route: 048
  5. ISONIAZID [Concomitant]
     Indication: TUBERCULOSIS SKIN TEST POSITIVE

REACTIONS (2)
  - SEPTIC SHOCK [None]
  - WOUND [None]
